FAERS Safety Report 23632672 (Version 1)
Quarter: 2024Q1

REPORT INFORMATION
  Report Type: Spontaneous
  Country: US (occurrence: US)
  Receive Date: 20240314
  Receipt Date: 20240314
  Transmission Date: 20240410
  Serious: No
  Sender: FDA-Public Use
  Company Number: ENDB23-04753

PATIENT
  Sex: Male

DRUGS (1)
  1. XIAFLEX [Suspect]
     Active Substance: COLLAGENASE CLOSTRIDIUM HISTOLYTICUM
     Indication: Dupuytren^s contracture
     Dosage: UNK UNKNOWN, UNKNOWN (XIAFLEX TREATMENTS ON BOTH HANDS A COUPLE YEARS  AGO)
     Route: 065
     Dates: start: 2020

REACTIONS (3)
  - Dupuytren^s contracture [Unknown]
  - Condition aggravated [Unknown]
  - Drug ineffective [Unknown]
